FAERS Safety Report 9804093 (Version 2)
Quarter: 2014Q2

REPORT INFORMATION
  Report Type: Spontaneous
  Country: US (occurrence: None)
  Receive Date: 20140103
  Receipt Date: 20140612
  Transmission Date: 20141212
  Serious: No
  Sender: FDA-Public Use
  Company Number: 2013-US-005033

PATIENT
  Age: 60 Year
  Sex: Male
  Weight: 149.7 kg

DRUGS (17)
  1. XYREM [Suspect]
     Indication: NARCOLEPSY
     Route: 048
     Dates: start: 20130124, end: 2013
  2. XYREM [Suspect]
     Indication: NARCOLEPSY
     Route: 048
     Dates: start: 20130124, end: 2013
  3. CELEBREX (CELECOXIB) [Concomitant]
  4. CLOPIDOGREL (CLOPIDOGREL) [Concomitant]
  5. CRESTOR (ROSUVASTATIN CALCIUM) [Concomitant]
  6. CYCLOBENZAPRINE HCL (CYCLOBENZAPRINE HYDROCHLORIDE) [Concomitant]
  7. DIOVAN (VALSARTAN) [Concomitant]
  8. CITALOPRAM (CITALOPRAM HYDROBROMIDE) [Concomitant]
  9. GABAPENTIN (GABAPENTIN) [Concomitant]
  10. LANTUS (INSULIN) [Concomitant]
  11. NOVOLIN R (INSULIN HUMAN) [Concomitant]
  12. LYRICA (PREGABALIN) [Concomitant]
  13. METFORMIN (METFORMIN HYDROCHLORIDE) [Concomitant]
  14. METOPROLOL (METOPROLOL TARTRATE) [Concomitant]
  15. NEXIUM (ESOMEPRAZOLE MAGNESIUM) [Concomitant]
  16. ROPINIROLE (ROPINIROLE HYDROCHLORIDE) [Concomitant]
  17. TORSEMIDE (TORASEMIDE) [Concomitant]

REACTIONS (6)
  - Sleep apnoea syndrome [None]
  - Insomnia [None]
  - Peripheral swelling [None]
  - Peripheral swelling [None]
  - Blood glucose increased [None]
  - Confusional state [None]
